FAERS Safety Report 9299127 (Version 2)
Quarter: 2013Q2

REPORT INFORMATION
  Report Type: Spontaneous
  Country: JP (occurrence: JP)
  Receive Date: 20130520
  Receipt Date: 20130603
  Transmission Date: 20140414
  Serious: Yes (Other)
  Sender: FDA-Public Use
  Company Number: JP-ELI_LILLY_AND_COMPANY-JP201305003102

PATIENT
  Age: 73 Year
  Sex: Female

DRUGS (1)
  1. GEMZAR [Suspect]

REACTIONS (1)
  - Thrombotic microangiopathy [Unknown]
